FAERS Safety Report 10188807 (Version 1)
Quarter: 2014Q2

REPORT INFORMATION
  Report Type: Spontaneous
  Country: US (occurrence: US)
  Receive Date: 20140522
  Receipt Date: 20140522
  Transmission Date: 20141212
  Serious: No
  Sender: FDA-Public Use
  Company Number: US-SA-2014SA023891

PATIENT
  Age: 77 Year
  Sex: Female

DRUGS (2)
  1. LANTUS SOLOSTAR [Suspect]
     Indication: TYPE 2 DIABETES MELLITUS
     Dosage: DOSE:6 UNIT(S)
     Route: 051
     Dates: start: 201307
  2. SOLOSTAR [Concomitant]
     Indication: TYPE 2 DIABETES MELLITUS
     Dates: start: 201307

REACTIONS (5)
  - Muscle spasms [Recovering/Resolving]
  - Arthropathy [Recovering/Resolving]
  - Oesophageal pain [Unknown]
  - Pain in extremity [Recovering/Resolving]
  - Incorrect dose administered [Unknown]
